FAERS Safety Report 19562421 (Version 1)
Quarter: 2021Q3

REPORT INFORMATION
  Report Type: Spontaneous
  Country: US (occurrence: US)
  Receive Date: 20210716
  Receipt Date: 20210716
  Transmission Date: 20211014
  Serious: No
  Sender: FDA-Public Use
  Company Number: None

PATIENT
  Age: 82 Year
  Sex: Female
  Weight: 72.9 kg

DRUGS (2)
  1. PACEMAKER [Concomitant]
     Active Substance: DEVICE
  2. NEUTROGENA SUNSCREEN NOS [Suspect]
     Active Substance: AVOBENZONE\HOMOSALATE\OCTISALATE\OCTOCRYLENE OR AVOBENZONE\HOMOSALATE\OCTISALATE\OCTOCRYLENE\OXYBENZONE
     Indication: SUNBURN
     Route: 061
     Dates: start: 20210613, end: 20210701

REACTIONS (2)
  - Recalled product administered [None]
  - Rash [None]

NARRATIVE: CASE EVENT DATE: 20210627
